FAERS Safety Report 23781665 (Version 1)
Quarter: 2024Q2

REPORT INFORMATION
  Report Type: Spontaneous
  Country: US (occurrence: US)
  Receive Date: 20240425
  Receipt Date: 20240425
  Transmission Date: 20240716
  Serious: Yes (Life-Threatening, Hospitalization, Other)
  Sender: FDA-Public Use
  Company Number: US-MLMSERVICE-20240408-PI017793-00217-1

PATIENT
  Age: 39 Year
  Sex: Female

DRUGS (1)
  1. METFORMIN [Suspect]
     Active Substance: METFORMIN HYDROCHLORIDE
     Indication: Weight decreased
     Dosage: SELF-ADMINISTERING METFORMIN AS A MEAN FOR WEIGHT LOSS, PROMPTED BY AN ESCALATING FEAR OF WEIGHT GAI

REACTIONS (3)
  - Lactic acidosis [Recovering/Resolving]
  - Toxicity to various agents [Recovering/Resolving]
  - Intentional product misuse [Recovering/Resolving]
